FAERS Safety Report 9077792 (Version 1)
Quarter: 2013Q1

REPORT INFORMATION
  Report Type: Report from Study
  Country: US (occurrence: US)
  Receive Date: 20130130
  Receipt Date: 20130130
  Transmission Date: 20140127
  Serious: No
  Sender: FDA-Public Use
  Company Number: US-ABBOTT-12P-163-0976383-00

PATIENT
  Age: 57 Year
  Sex: Male

DRUGS (4)
  1. HUMIRA [Suspect]
     Indication: CROHN^S DISEASE
     Dates: start: 20120620
  2. UNKNOWN MEDICATION [Concomitant]
     Indication: BLOOD PRESSURE
     Dosage: DAILY
     Route: 048
  3. JALYN [Concomitant]
     Indication: PROSTATIC DISORDER
     Dosage: 1 EVERY OTHER DAY
  4. PRILOSEC [Concomitant]
     Indication: DYSPEPSIA
     Dosage: DAILY
     Route: 048

REACTIONS (1)
  - Rash pruritic [Recovered/Resolved]
